FAERS Safety Report 24267781 (Version 1)
Quarter: 2024Q3

REPORT INFORMATION
  Report Type: Other
  Country: US (occurrence: US)
  Receive Date: 20240830
  Receipt Date: 20240830
  Transmission Date: 20241016
  Serious: Yes (Hospitalization, Disabling)
  Sender: NOSTRUM
  Company Number: US-Nostrum Laboratories, Inc.-2161016

PATIENT
  Sex: Female

DRUGS (3)
  1. HYDROCODONE BITARTRATE\IBUPROFEN [Suspect]
     Active Substance: HYDROCODONE BITARTRATE\IBUPROFEN
     Indication: Pain
     Route: 048
  2. XGEVA [Suspect]
     Active Substance: DENOSUMAB
     Route: 058
  3. IBRANCE [Suspect]
     Active Substance: PALBOCICLIB
     Route: 048

REACTIONS (1)
  - Osteonecrosis of jaw [Unknown]
